FAERS Safety Report 4443212-3 (Version None)
Quarter: 2004Q3

REPORT INFORMATION
  Report Type: 
  Country: None (occurrence: None)
  Receive Date: 20040907
  Receipt Date: 20040907
  Transmission Date: 20050211
  Serious: Yes (Hospitalization)
  Sender: FDA-Public Use
  Company Number: None

PATIENT
  Age: 60 Year
  Sex: Female
  Weight: 68.0396 kg

DRUGS (8)
  1. GEMCITABINE [Suspect]
     Indication: BREAST CANCER STAGE II
     Dosage: INTRAVENOUS
     Route: 042
     Dates: start: 20040517, end: 20040602
  2. ACCUPRIL [Concomitant]
  3. LIPITOR [Concomitant]
  4. AMITRIPTYLINE HCL [Concomitant]
  5. GLUCOVANCE [Concomitant]
  6. PROZAC [Concomitant]
  7. RESTORIL [Concomitant]
  8. PERCOCET [Concomitant]

REACTIONS (9)
  - BUNDLE BRANCH BLOCK LEFT [None]
  - CARDIAC FAILURE CONGESTIVE [None]
  - DEPRESSED LEVEL OF CONSCIOUSNESS [None]
  - DRUG HYPERSENSITIVITY [None]
  - DYSPNOEA [None]
  - PALPITATIONS [None]
  - RASH [None]
  - SUPRAVENTRICULAR TACHYCARDIA [None]
  - TACHYCARDIA [None]
